FAERS Safety Report 22250876 (Version 1)
Quarter: 2023Q2

REPORT INFORMATION
  Report Type: Report from Study
  Country: US (occurrence: US)
  Receive Date: 20230425
  Receipt Date: 20230425
  Transmission Date: 20230722
  Serious: No
  Sender: FDA-Public Use
  Company Number: US-BIOVITRUM-2022US10107

PATIENT
  Age: 27 Year
  Sex: Male

DRUGS (3)
  1. KINERET [Suspect]
     Active Substance: ANAKINRA
     Indication: Still^s disease
     Dosage: DAILY
  2. KINERET [Suspect]
     Active Substance: ANAKINRA
     Dosage: DAILY
     Dates: start: 202206
  3. KINERET [Suspect]
     Active Substance: ANAKINRA
     Dosage: DAILY
     Route: 058
     Dates: start: 20220701

REACTIONS (7)
  - Off label use [Unknown]
  - Injection site pain [Unknown]
  - Injection site rash [Recovered/Resolved]
  - Insomnia [Unknown]
  - Headache [Unknown]
  - Product dose omission in error [Unknown]
  - Product dose omission issue [Unknown]

NARRATIVE: CASE EVENT DATE: 20220601
